FAERS Safety Report 5622712-4 (Version None)
Quarter: 2008Q1

REPORT INFORMATION
  Report Type: 
  Country: None (occurrence: None)
  Receive Date: 20080212
  Receipt Date: 20080204
  Transmission Date: 20080703
  Serious: No
  Sender: FDA-Public Use
  Company Number: US-BOEHRINGER INGELHEIM GMBH, GERMANY-2008-BP-01657BP

PATIENT
  Sex: Male

DRUGS (6)
  1. SPIRIVA [Suspect]
     Route: 055
     Dates: start: 20080122
  2. CARDIZEM [Concomitant]
     Indication: HYPERTENSION
  3. METFORMIN HCL [Concomitant]
     Indication: BLOOD GLUCOSE INCREASED
  4. MEVACOR [Concomitant]
     Indication: BLOOD CHOLESTEROL INCREASED
  5. SINGULAIR [Concomitant]
     Indication: ASTHMA
  6. SYMBICORT [Concomitant]
     Indication: ASTHMA

REACTIONS (1)
  - CONSTIPATION [None]
